FAERS Safety Report 21908214 (Version 2)
Quarter: 2023Q1

REPORT INFORMATION
  Report Type: Spontaneous
  Country: US (occurrence: US)
  Receive Date: 20230125
  Receipt Date: 20230303
  Transmission Date: 20230418
  Serious: No
  Sender: FDA-Public Use
  Company Number: US-BRISTOL-MYERS SQUIBB COMPANY-2023-009755

PATIENT
  Age: 43 Year
  Sex: Female

DRUGS (2)
  1. KENALOG-40 [Suspect]
     Active Substance: TRIAMCINOLONE ACETONIDE
     Indication: Plasma cell mastitis
  2. LIDOCAINE [Suspect]
     Active Substance: LIDOCAINE
     Indication: Product used for unknown indication

REACTIONS (3)
  - Breast pain [Unknown]
  - Suppressed lactation [Recovered/Resolved]
  - Off label use [Unknown]
